FAERS Safety Report 5909877-1 (Version None)
Quarter: 2008Q4

REPORT INFORMATION
  Report Type: 
  Country: None (occurrence: None)
  Receive Date: 20081002
  Receipt Date: 20080919
  Transmission Date: 20090506
  Serious: Yes (Disabling)
  Sender: FDA-Public Use
  Company Number: 1000000579

PATIENT
  Age: 34 Year
  Sex: Female
  Weight: 57 kg

DRUGS (4)
  1. ESCITALOPRAM [Suspect]
     Indication: ANXIETY
     Dosage: ORAL
     Route: 048
     Dates: start: 20070701
  2. TRUXAL (TABLETS) [Suspect]
     Indication: STRESS
     Dosage: ORAL
     Route: 048
     Dates: start: 20070518, end: 20080706
  3. LYRICA [Suspect]
     Indication: ANXIETY
     Dosage: ORAL
     Route: 048
     Dates: start: 20070801
  4. ZYPREXA [Suspect]
     Indication: DEPRESSION
     Dosage: 5 MG (5 MG, 1 IN 1 D), ORAL
     Route: 048
     Dates: start: 20070701

REACTIONS (3)
  - ANXIETY [None]
  - TOOTH FRACTURE [None]
  - TOOTH LOSS [None]
